FAERS Safety Report 18868841 (Version 2)
Quarter: 2021Q1

REPORT INFORMATION
  Report Type: Spontaneous
  Country: JP (occurrence: JP)
  Receive Date: 20210209
  Receipt Date: 20210317
  Transmission Date: 20210420
  Serious: Yes (Death, Other)
  Sender: FDA-Public Use
  Company Number: JP-ROCHE-2762744

PATIENT
  Age: 63 Year
  Sex: Male
  Weight: 52 kg

DRUGS (13)
  1. DIART [Concomitant]
     Active Substance: AZOSEMIDE
     Route: 048
     Dates: start: 20201124
  2. ALDACTONE A [Concomitant]
     Active Substance: SPIRONOLACTONE
     Dosage: DOSAGE IS UNCERTAIN.
     Route: 048
     Dates: start: 20201124
  3. OLMETEC [Concomitant]
     Active Substance: OLMESARTAN MEDOXOMIL
     Dosage: AFTER AN UNCERTAIN BREAKFAST OF DOSAGE
     Route: 048
  4. AVASTIN [Suspect]
     Active Substance: BEVACIZUMAB
     Indication: HEPATOCELLULAR CARCINOMA
     Route: 041
     Dates: start: 20201016, end: 20201016
  5. AVASTIN [Suspect]
     Active Substance: BEVACIZUMAB
     Route: 041
     Dates: start: 20201223, end: 20201223
  6. MIYA?BM [Concomitant]
     Active Substance: CLOSTRIDIUM BUTYRICUM SPORES STRAIN M-55
     Dosage: AFTER THE SUPPER DOSAGE UNCERTAIN DAYTIME OF MATUTINAL
     Route: 048
  7. GLAKAY [Concomitant]
     Active Substance: MENATETRENONE
     Dosage: AFTER THE SUPPER DOSAGE UNCERTAIN DAYTIME OF MATUTINAL
     Route: 048
  8. THYRADIN?S [Concomitant]
     Active Substance: LEVOTHYROXINE
     Dosage: AFTER AN UNCERTAIN BREAKFAST OF DOSAGE
     Route: 048
  9. SAMSCA [Concomitant]
     Active Substance: TOLVAPTAN
     Dosage: DOSAGE IS UNCERTAIN.
     Route: 048
     Dates: start: 20201124
  10. PORTOLAC [Concomitant]
     Active Substance: LACTITOL
     Dosage: AFTER THE SUPPER DOSAGE UNCERTAIN DAYTIME OF MATUTINAL
     Route: 048
  11. ZINC. [Concomitant]
     Active Substance: ZINC
     Dosage: AFTER THE SUPPER A DOSAGE UNCERTAIN MORNING
     Route: 048
  12. TECENTRIQ [Suspect]
     Active Substance: ATEZOLIZUMAB
     Indication: HEPATOCELLULAR CARCINOMA
     Dosage: DATE OF MOST RECENT DOSE OF ATEZOLIZUMAB: 23/DEC/2020
     Route: 041
     Dates: start: 20201016
  13. NEXIUM [Concomitant]
     Active Substance: ESOMEPRAZOLE MAGNESIUM
     Dosage: AFTER AN UNCERTAIN BREAKFAST OF DOSAGE
     Route: 048

REACTIONS (3)
  - Varicose vein ruptured [Unknown]
  - Upper gastrointestinal haemorrhage [Fatal]
  - Shock haemorrhagic [Fatal]

NARRATIVE: CASE EVENT DATE: 20201103
